FAERS Safety Report 8887357 (Version 1)
Quarter: 2012Q4

REPORT INFORMATION
  Report Type: 
  Country: US (occurrence: None)
  Receive Date: 20121101
  Receipt Date: 20121101
  Transmission Date: 20130627
  Serious: No
  Sender: FDA-Public Use
  Company Number: None

PATIENT
  Age: 83 None
  Sex: Male

DRUGS (1)
  1. VALTREX [Suspect]
     Indication: HERPETIFORM LESION
     Dosage: Valtrex 1000 mg Three x daily Oral
     Route: 048
     Dates: start: 20120925

REACTIONS (2)
  - Metabolic encephalopathy [None]
  - Drug prescribing error [None]
